FAERS Safety Report 6557365-4 (Version None)
Quarter: 2010Q1

REPORT INFORMATION
  Report Type: 
  Country: None (occurrence: None)
  Receive Date: 20100129
  Receipt Date: 20100115
  Transmission Date: 20100710
  Serious: Yes (Other)
  Sender: FDA-Public Use
  Company Number: PHEH2010US00904

PATIENT
  Sex: Female

DRUGS (15)
  1. AREDIA [Suspect]
     Dosage: UNK
     Dates: start: 20091011
  2. DEXAMETHASONE [Concomitant]
  3. COUMADIN [Concomitant]
  4. LIPITOR [Concomitant]
  5. METFORMIN [Concomitant]
  6. LISINOPRIL [Concomitant]
  7. MS CONTIN [Concomitant]
  8. OXYCODONE [Concomitant]
  9. ATACAND [Concomitant]
  10. COMPAZINE [Concomitant]
  11. DULCOLAX [Concomitant]
  12. NEXIUM [Concomitant]
  13. SENOKOT [Concomitant]
  14. SIMETHICONE [Concomitant]
  15. ALENDRONATE SODIUM [Concomitant]

REACTIONS (4)
  - ARTHROPATHY [None]
  - CONSTIPATION [None]
  - RASH [None]
  - WHITE BLOOD CELL COUNT INCREASED [None]
